FAERS Safety Report 8581421-2 (Version None)
Quarter: 2012Q3

REPORT INFORMATION
  Report Type: 
  Country: None (occurrence: None)
  Receive Date: 20120809
  Receipt Date: 20120801
  Transmission Date: 20120928
  Serious: Yes (Other)
  Sender: FDA-Public Use
  Company Number: US-BAYER-2012-079377

PATIENT
  Age: 30 Year
  Sex: Female
  Weight: 112.47 kg

DRUGS (2)
  1. YASMIN [Suspect]
     Indication: DYSMENORRHOEA
     Dosage: UNK
     Dates: end: 20041229
  2. DARVOCET [Concomitant]

REACTIONS (1)
  - DEEP VEIN THROMBOSIS [None]
